FAERS Safety Report 18397074 (Version 1)
Quarter: 2020Q4

REPORT INFORMATION
  Report Type: Spontaneous
  Country: US (occurrence: US)
  Receive Date: 20201016
  Receipt Date: 20201016
  Transmission Date: 20210114
  Serious: Yes (Death)
  Sender: FDA-Public Use
  Company Number: None

PATIENT
  Age: 65 Year
  Sex: Male

DRUGS (10)
  1. GABAPENTIN. [Concomitant]
     Active Substance: GABAPENTIN
  2. ACID CONTROL [Concomitant]
     Active Substance: FAMOTIDINE
  3. TAMSULOSIN [Concomitant]
     Active Substance: TAMSULOSIN
  4. DEXILANT [Concomitant]
     Active Substance: DEXLANSOPRAZOLE
  5. VOTRIENT [Suspect]
     Active Substance: PAZOPANIB HYDROCHLORIDE
     Indication: RENAL CANCER
     Route: 048
     Dates: start: 20200728, end: 20201005
  6. PREVACID [Concomitant]
     Active Substance: LANSOPRAZOLE
  7. TRAMADOL HCL [Concomitant]
     Active Substance: TRAMADOL HYDROCHLORIDE
  8. TRAZODONE [Concomitant]
     Active Substance: TRAZODONE HYDROCHLORIDE
  9. BALSALAZIDE [Concomitant]
     Active Substance: BALSALAZIDE
  10. ELIQUIS [Concomitant]
     Active Substance: APIXABAN

REACTIONS (1)
  - Death [None]

NARRATIVE: CASE EVENT DATE: 20201005
